FAERS Safety Report 23742088 (Version 1)
Quarter: 2024Q2

REPORT INFORMATION
  Report Type: Spontaneous
  Country: FR (occurrence: FR)
  Receive Date: 20240415
  Receipt Date: 20240415
  Transmission Date: 20240715
  Serious: Yes (Hospitalization)
  Sender: FDA-Public Use
  Company Number: None

PATIENT
  Age: 71 Year
  Sex: Female
  Weight: 77 kg

DRUGS (12)
  1. CARBOPLATIN [Suspect]
     Active Substance: CARBOPLATIN
     Indication: Squamous cell carcinoma
     Dosage: 1250 MG/M2 OR 2240 DT ON D1
     Dates: start: 20240228, end: 20240228
  2. GEMCITABINE [Suspect]
     Active Substance: GEMCITABINE
     Indication: Squamous cell carcinoma
     Dosage: AUC 5 OR 540 MG DT ON D1
     Dates: start: 20240228, end: 20240228
  3. ONDANSETRON [Suspect]
     Active Substance: ONDANSETRON
     Indication: Chemotherapy side effect prophylaxis
     Dates: start: 202402
  4. OXYCONTIN [Suspect]
     Active Substance: OXYCODONE HYDROCHLORIDE
     Indication: Pain
     Dates: start: 20240229
  5. PREDNISOLONE [Suspect]
     Active Substance: PREDNISOLONE
     Indication: Chemotherapy side effect prophylaxis
     Dates: start: 202402
  6. EMEND [Suspect]
     Active Substance: APREPITANT
     Indication: Chemotherapy side effect prophylaxis
     Dates: start: 202402
  7. FERRIC CARBOXYMALTOSE [Suspect]
     Active Substance: FERRIC CARBOXYMALTOSE
     Indication: Iron deficiency anaemia
     Dates: start: 20240229, end: 20240229
  8. UMECLIDINIUM BROMIDE\VILANTEROL TRIFENATATE [Concomitant]
     Active Substance: UMECLIDINIUM BROMIDE\VILANTEROL TRIFENATATE
     Indication: Chronic obstructive pulmonary disease
     Dosage: 1 PAR JOUR
  9. FLECAINIDE [Concomitant]
     Active Substance: FLECAINIDE
     Indication: Atrial fibrillation
     Dosage: 1 IN THE MORNING
  10. CANDESARTAN CILEXETIL [Concomitant]
     Active Substance: CANDESARTAN CILEXETIL
     Indication: Hypertension
     Dosage: 1 IN THE MORNING
  11. XARELTO [Concomitant]
     Active Substance: RIVAROXABAN
     Indication: Atrial fibrillation
     Dosage: 1 IN THE EVENING
  12. ALBUTEROL [Concomitant]
     Active Substance: ALBUTEROL
     Indication: Asthma
     Dosage: 1 PER DAY

REACTIONS (3)
  - Rash pruritic [Recovered/Resolved]
  - Hepatic cytolysis [Recovering/Resolving]
  - Atrial fibrillation [Recovered/Resolved]

NARRATIVE: CASE EVENT DATE: 20240229
